FAERS Safety Report 5362435-2 (Version None)
Quarter: 2007Q2

REPORT INFORMATION
  Report Type: 
  Country: None (occurrence: None)
  Receive Date: 20070530
  Receipt Date: 20070322
  Transmission Date: 20071010
  Serious: No
  Sender: FDA-Public Use
  Company Number: 2007PV032181

PATIENT
  Age: 51 Year
  Sex: Male

DRUGS (6)
  1. BYETTA [Suspect]
     Indication: DIABETES MELLITUS NON-INSULIN-DEPENDENT
     Dosage: 5 MCG; BID SC
     Route: 058
     Dates: start: 20070321
  2. PRANDIN [Concomitant]
  3. LOPID [Concomitant]
  4. ASPIRIN [Concomitant]
  5. DIOVAN HCT [Concomitant]
  6. THYROID TAB [Concomitant]

REACTIONS (1)
  - BLOOD GLUCOSE INCREASED [None]
